FAERS Safety Report 7065746-8 (Version None)
Quarter: 2010Q4

REPORT INFORMATION
  Report Type: 
  Country: None (occurrence: None)
  Receive Date: 20101027
  Receipt Date: 20101019
  Transmission Date: 20110411
  Serious: Yes (Life-Threatening, Other)
  Sender: FDA-Public Use
  Company Number: PHHO2010FR15129

PATIENT
  Sex: Female

DRUGS (5)
  1. STI571/CGP57148B T35717+TAB [Suspect]
     Indication: ACUTE LYMPHOCYTIC LEUKAEMIA
     Dosage: 600MG
     Route: 048
     Dates: start: 20100914, end: 20101006
  2. METHOTREXATE [Suspect]
     Dosage: UNK
     Dates: start: 20100914, end: 20100915
  3. ARA-C [Suspect]
     Dosage: UNK
     Dates: start: 20100915, end: 20100916
  4. PIPERACILLIN AND TAZOBACTAM [Suspect]
  5. WELLVONE [Suspect]

REACTIONS (12)
  - ALTERED STATE OF CONSCIOUSNESS [None]
  - APLASIA [None]
  - BRONCHOPULMONARY ASPERGILLOSIS [None]
  - CONFUSIONAL STATE [None]
  - HAEMODIALYSIS [None]
  - HEPATIC FAILURE [None]
  - MULTI-ORGAN FAILURE [None]
  - RENAL FAILURE [None]
  - RENAL TUBULAR NECROSIS [None]
  - RESPIRATORY DISTRESS [None]
  - SEPTIC SHOCK [None]
  - TOXIC SKIN ERUPTION [None]
